FAERS Safety Report 4504998-2 (Version None)
Quarter: 2004Q4

REPORT INFORMATION
  Report Type: 
  Country: None (occurrence: None)
  Receive Date: 20041015
  Receipt Date: 20040108
  Transmission Date: 20050328
  Serious: Yes (Other)
  Sender: FDA-Public Use
  Company Number: 2003116123

PATIENT
  Age: 56 Year
  Sex: Male

DRUGS (4)
  1. NEURONTIN [Suspect]
     Indication: NEUROPATHIC PAIN
     Dosage: 300 MG ONCE ORAL
     Route: 048
     Dates: start: 20010719
  2. FENTANYL [Concomitant]
  3. ATENOLOL [Concomitant]
  4. DILTIAZEM [Concomitant]

REACTIONS (4)
  - ABNORMAL DREAMS [None]
  - CHEST PAIN [None]
  - NIGHTMARE [None]
  - SUICIDAL IDEATION [None]
